FAERS Safety Report 15139254 (Version 5)
Quarter: 2018Q3

REPORT INFORMATION
  Report Type: Spontaneous
  Country: US (occurrence: US)
  Receive Date: 20180713
  Receipt Date: 20180829
  Transmission Date: 20181010
  Serious: No
  Sender: FDA-Public Use
  Company Number: US-PFIZER INC-2018282147

PATIENT
  Age: 79 Year
  Sex: Male
  Weight: 113.4 kg

DRUGS (3)
  1. ADVIL LIQUI?GELS [Suspect]
     Active Substance: IBUPROFEN
     Indication: BACK DISORDER
  2. ADVIL LIQUI?GELS [Suspect]
     Active Substance: IBUPROFEN
     Indication: ARTHRITIS
  3. ADVIL LIQUI?GELS [Suspect]
     Active Substance: IBUPROFEN
     Indication: SPONDYLITIS
     Dosage: UNK, DAILY (6?8 PILLS PER DAY)

REACTIONS (5)
  - Throat tightness [Unknown]
  - Overdose [Unknown]
  - Vocal cord disorder [Not Recovered/Not Resolved]
  - Gait disturbance [Unknown]
  - Cough [Unknown]
